FAERS Safety Report 8612141-3 (Version None)
Quarter: 2012Q3

REPORT INFORMATION
  Report Type: 
  Country: None (occurrence: None)
  Receive Date: 20120822
  Receipt Date: 20120814
  Transmission Date: 20120928
  Serious: Yes (Disabling)
  Sender: FDA-Public Use
  Company Number: GB-FRI-1000038064

PATIENT
  Age: 86 Year
  Sex: Female

DRUGS (4)
  1. MEBEVERINE [Concomitant]
     Dosage: 400 MG
     Route: 048
  2. CITALOPRAM HYDROBROMIDE [Suspect]
     Indication: DEPRESSED MOOD
     Dosage: 20 MG
     Route: 048
     Dates: start: 20120301, end: 20120401
  3. MEMANTINE HCL [Concomitant]
     Indication: DEMENTIA
     Dosage: 20 MG
     Route: 048
     Dates: start: 20111001
  4. AMLODIPINE [Concomitant]
     Dosage: 5 MG
     Route: 048

REACTIONS (3)
  - SEDATION [None]
  - INCOHERENT [None]
  - FALL [None]
